FAERS Safety Report 5794409-1 (Version None)
Quarter: 2008Q2

REPORT INFORMATION
  Report Type: 
  Country: None (occurrence: None)
  Receive Date: 20080618
  Receipt Date: 20080604
  Transmission Date: 20081010
  Serious: Yes (Other)
  Sender: FDA-Public Use
  Company Number: THYM-1000708

PATIENT
  Sex: Male

DRUGS (4)
  1. THYMOGLOBULIN [Suspect]
     Indication: DRUG USE FOR UNKNOWN INDICATION
     Dosage: 1 MG/KG, QD, INTRAVENOUS, INTRAVENOUS
     Route: 042
     Dates: end: 20080601
  2. THYMOGLOBULIN [Suspect]
     Indication: HEART TRANSPLANT REJECTION
     Dosage: 1 MG/KG, QD, INTRAVENOUS, INTRAVENOUS
     Route: 042
     Dates: end: 20080601
  3. THYMOGLOBULIN [Suspect]
     Indication: DRUG USE FOR UNKNOWN INDICATION
     Dosage: 1 MG/KG, QD, INTRAVENOUS, INTRAVENOUS
     Route: 042
     Dates: start: 20060101
  4. THYMOGLOBULIN [Suspect]
     Indication: HEART TRANSPLANT REJECTION
     Dosage: 1 MG/KG, QD, INTRAVENOUS, INTRAVENOUS
     Route: 042
     Dates: start: 20060101

REACTIONS (1)
  - HEART TRANSPLANT REJECTION [None]
